FAERS Safety Report 21213295 (Version 1)
Quarter: 2022Q3

REPORT INFORMATION
  Report Type: Spontaneous
  Country: US (occurrence: US)
  Receive Date: 20220815
  Receipt Date: 20220815
  Transmission Date: 20221026
  Serious: Yes (Death, Other)
  Sender: FDA-Public Use
  Company Number: US-HQ SPECIALTY-US-2022INT000163

PATIENT
  Sex: Female

DRUGS (12)
  1. ESMOLOL HYDROCHLORIDE [Suspect]
     Active Substance: ESMOLOL HYDROCHLORIDE
     Indication: Atrial tachycardia
     Dosage: UNK
     Route: 042
  2. ESMOLOL HYDROCHLORIDE [Suspect]
     Active Substance: ESMOLOL HYDROCHLORIDE
     Dosage: UP TO 250 MCG/KG/MIN
     Route: 042
  3. DIGOXIN [Suspect]
     Active Substance: DIGOXIN
     Indication: Atrial tachycardia
     Dosage: 16 MICROGRAM/KILOGRAM
     Route: 065
  4. DIGOXIN [Suspect]
     Active Substance: DIGOXIN
     Dosage: 3 MICROGRAM/KILOGRAM, BID
     Route: 065
  5. SOTALOL [Suspect]
     Active Substance: SOTALOL
     Indication: Atrial tachycardia
     Dosage: 12 MG/M2, Q8H
     Route: 065
  6. AMIODARONE [Suspect]
     Active Substance: AMIODARONE
     Indication: Atrial tachycardia
     Dosage: 7 MCG/KG/MIN
     Route: 042
  7. AMIODARONE [Suspect]
     Active Substance: AMIODARONE
     Dosage: 3.5 MCG/KG/MIN
     Route: 042
  8. PROPRANOLOL [Suspect]
     Active Substance: PROPRANOLOL HYDROCHLORIDE
     Indication: Atrial tachycardia
     Dosage: 1 MG/KG, QD (DIVIDED EVERY 6 HOURS)
     Route: 065
  9. PROCAINAMIDE HYDROCHLORIDE [Suspect]
     Active Substance: PROCAINAMIDE HYDROCHLORIDE
     Indication: Atrial tachycardia
     Dosage: 15 MG/KG
     Route: 042
  10. PROCAINAMIDE HYDROCHLORIDE [Suspect]
     Active Substance: PROCAINAMIDE HYDROCHLORIDE
     Dosage: 40 MCG/KG/MIN
     Route: 042
  11. IVABRADINE [Suspect]
     Active Substance: IVABRADINE
     Indication: Atrial tachycardia
     Dosage: 0.1 MG/KG, BID
     Route: 065
  12. IVABRADINE [Suspect]
     Active Substance: IVABRADINE
     Dosage: 0.1 MG/KG, TID
     Route: 065

REACTIONS (1)
  - Hypotension [Fatal]
